FAERS Safety Report 7132072-8 (Version None)
Quarter: 2010Q4

REPORT INFORMATION
  Report Type: 
  Country: None (occurrence: None)
  Receive Date: 20101202
  Receipt Date: 20101125
  Transmission Date: 20110411
  Serious: Yes (Hospitalization)
  Sender: FDA-Public Use
  Company Number: PHHY2010VE45125

PATIENT
  Sex: Female

DRUGS (9)
  1. FORADILE [Suspect]
     Indication: CHRONIC OBSTRUCTIVE PULMONARY DISEASE
     Dosage: TWICE A DAY
  2. BUDESONIDE [Suspect]
     Indication: CHRONIC OBSTRUCTIVE PULMONARY DISEASE
     Dosage: TWICE A DAY
  3. ATENOLOL [Concomitant]
  4. ENALAPRIL [Concomitant]
  5. OMEPRAZOLE [Concomitant]
  6. CINNARIZINE [Concomitant]
  7. SIMVASTATIN [Concomitant]
  8. HYDROCHLOROTHIAZIDE [Concomitant]
  9. ASPIRIN [Concomitant]

REACTIONS (3)
  - EMPHYSEMA [None]
  - INFLUENZA [None]
  - PNEUMONIA [None]
